FAERS Safety Report 16098542 (Version 5)
Quarter: 2020Q1

REPORT INFORMATION
  Report Type: Report from Study
  Country: JP (occurrence: JP)
  Receive Date: 20190321
  Receipt Date: 20200221
  Transmission Date: 20200409
  Serious: Yes (Death, Life-Threatening, Hospitalization, Other)
  Sender: FDA-Public Use
  Company Number: JP-ASTELLAS-2019JP004283

PATIENT
  Age: 6 Decade
  Sex: Female
  Weight: 33 kg

DRUGS (23)
  1. ASP2215 [Suspect]
     Active Substance: GILTERITINIB
     Indication: ACUTE MYELOID LEUKAEMIA RECURRENT
     Route: 048
     Dates: start: 20190221, end: 20190312
  2. PANTHENYL [Concomitant]
     Indication: CONSTIPATION
     Dosage: 1500 MG/DAY, UNKNOWN FREQ.
     Route: 065
     Dates: start: 20190222, end: 20190313
  3. TAKEPRON [Concomitant]
     Active Substance: LANSOPRAZOLE
     Indication: PROPHYLAXIS
     Dosage: 60 MG/DAY, UNKNOWN FREQ.
     Route: 065
     Dates: start: 20190223, end: 20190314
  4. SOLU-MEDROL [Concomitant]
     Active Substance: METHYLPREDNISOLONE SODIUM SUCCINATE
     Indication: HAEMOPHAGOCYTIC LYMPHOHISTIOCYTOSIS
     Dosage: 60 MG/DAY, UNKNOWN FREQ.
     Route: 065
     Dates: start: 20190225, end: 20190314
  5. ASPARA POTASSIUM [Concomitant]
     Active Substance: POTASSIUM ASPARTATE
     Indication: HYPOKALAEMIA
     Dosage: 2700 MG/DAY, UNKNOWN FREQ.
     Route: 048
  6. TAKECAB [Concomitant]
     Active Substance: VONOPRAZAN FUMURATE
     Indication: PROPHYLAXIS
     Dosage: 10 MG/DAY, UNKNOWN FREQ.
     Route: 048
  7. SOLDACTONE [Concomitant]
     Active Substance: CANRENOATE POTASSIUM
     Indication: CARDIAC FAILURE CONGESTIVE
     Dosage: 400 MG/DAY, UNKNOWN FREQ.
     Route: 065
  8. ACETAMINOPHEN. [Concomitant]
     Active Substance: ACETAMINOPHEN
     Indication: PRODUCT USED FOR UNKNOWN INDICATION
     Dosage: UNK UNK, UNKNOWN FREQ.
     Route: 065
  9. ALFACALCIDOL [Concomitant]
     Active Substance: ALFACALCIDOL
     Indication: VITAMIN D DEFICIENCY
     Dosage: 5 ?G/DAY, UNKNOWN FREQ.
     Route: 048
  10. URSODEOXYCHOLIC ACID [Concomitant]
     Active Substance: URSODIOL
     Indication: HYPERBILIRUBINAEMIA
     Dosage: 600 MG/DAY, UNKNOWN FREQ.
     Route: 048
     Dates: start: 20190226, end: 20190313
  11. SYMPROIC [Concomitant]
     Active Substance: NALDEMEDINE
     Indication: CONSTIPATION
     Dosage: 0.2 MG/DAY, UNKNOWN FREQ.
     Route: 048
  12. AMBISOME [Concomitant]
     Active Substance: AMPHOTERICIN B
     Indication: ENTEROCOLITIS FUNGAL
     Dosage: 160 MG/DAY, UNKNOWN FREQ.
     Route: 041
  13. FENTANYL. [Concomitant]
     Active Substance: FENTANYL
     Indication: PRODUCT USED FOR UNKNOWN INDICATION
     Dosage: UNK UNK, UNKNOWN FREQ.
     Route: 065
  14. ADONA (AC-17) [Concomitant]
     Indication: MELAENA
     Dosage: 100 MG/DAY, UNKNOWN FREQ.
     Route: 065
  15. PN TWIN [Concomitant]
     Indication: DECREASED APPETITE
     Dosage: 1200 ML/DAY, UNKNOWN FREQ.
     Route: 065
  16. AMLODIPINE [Concomitant]
     Active Substance: AMLODIPINE BESYLATE
     Indication: HYPERTENSION
     Dosage: 5 MG/DAY, UNKNOWN FREQ.
     Route: 048
  17. METHYLPREDNISOLONE. [Concomitant]
     Active Substance: METHYLPREDNISOLONE
     Indication: HAEMOPHAGOCYTIC LYMPHOHISTIOCYTOSIS
     Dosage: UNK UNK, UNKNOWN FREQ.
     Route: 065
  18. ACICLOVIR [Concomitant]
     Active Substance: ACYCLOVIR
     Indication: PROPHYLAXIS
     Dosage: 200 MG/DAY, UNKNOWN FREQ.
     Route: 048
  19. CANCIDAS [Concomitant]
     Active Substance: CASPOFUNGIN ACETATE
     Indication: PRODUCT USED FOR UNKNOWN INDICATION
     Dosage: UNK UNK, UNKNOWN FREQ.
     Route: 041
  20. VFEND [Concomitant]
     Active Substance: VORICONAZOLE
     Indication: PRODUCT USED FOR UNKNOWN INDICATION
     Dosage: 260 MG/DAY, UNKNOWN FREQ.
     Route: 041
     Dates: start: 20190221, end: 20190313
  21. VANCOMYCIN [Concomitant]
     Active Substance: VANCOMYCIN
     Indication: DEVICE RELATED INFECTION
     Dosage: 750 MG/DAY, UNKNOWN FREQ.
     Route: 041
  22. LEVOFLOXACIN HEMIHYDRATE [Concomitant]
     Active Substance: LEVOFLOXACIN
     Indication: ENTEROCOLITIS BACTERIAL
     Dosage: 500 MG/DAY, UNKNOWN FREQ.
     Route: 041
  23. NEOLAMIN MULTI V [Concomitant]
     Active Substance: HYDROXOCOBALAMIN\PYRIDOXINE HYDROCHLORIDE\THIAMINE HYDROCHLORIDE
     Indication: DECREASED APPETITE
     Dosage: 1 VIAL/DAY, UNKNOWN FREQ.
     Route: 065

REACTIONS (6)
  - Graft versus host disease [Fatal]
  - Hyperbilirubinaemia [Not Recovered/Not Resolved]
  - Enterocolitis fungal [Fatal]
  - Lower gastrointestinal haemorrhage [Not Recovered/Not Resolved]
  - Bone marrow failure [Not Recovered/Not Resolved]
  - Bronchopulmonary aspergillosis [Fatal]

NARRATIVE: CASE EVENT DATE: 20190224
